FAERS Safety Report 22540736 (Version 2)
Quarter: 2023Q2

REPORT INFORMATION
  Report Type: Spontaneous
  Country: US (occurrence: US)
  Receive Date: 20230609
  Receipt Date: 20230622
  Transmission Date: 20230722
  Serious: Yes (Disabling, Other)
  Sender: FDA-Public Use
  Company Number: US-SANOFI-01643305

PATIENT
  Age: 61 Year
  Sex: Female
  Weight: 54.43 kg

DRUGS (3)
  1. DUPIXENT [Suspect]
     Active Substance: DUPILUMAB
     Indication: Eczema
     Dosage: 600 MG, 1X
     Dates: start: 20230215, end: 20230215
  2. DUPIXENT [Suspect]
     Active Substance: DUPILUMAB
     Dosage: 300 MG, QOW
     Dates: start: 2023
  3. RITUXIMAB [Suspect]
     Active Substance: RITUXIMAB
     Dosage: 1000 MG EVERY 5.5 MONTHS

REACTIONS (9)
  - Multiple sclerosis [Unknown]
  - Walking disability [Unknown]
  - Hypoaesthesia [Unknown]
  - Condition aggravated [Unknown]
  - Symptom recurrence [Unknown]
  - Fatigue [Unknown]
  - Muscular weakness [Recovering/Resolving]
  - Condition aggravated [Recovering/Resolving]
  - Drug interaction [Unknown]

NARRATIVE: CASE EVENT DATE: 20230101
